FAERS Safety Report 16579690 (Version 1)
Quarter: 2019Q3

REPORT INFORMATION
  Report Type: Spontaneous
  Country: ES (occurrence: ES)
  Receive Date: 20190716
  Receipt Date: 20190716
  Transmission Date: 20191004
  Serious: Yes (Hospitalization)
  Sender: FDA-Public Use
  Company Number: ES-JNJFOC-20190707169

PATIENT
  Age: 53 Year
  Sex: Male

DRUGS (3)
  1. REXER FLAS [Suspect]
     Active Substance: MIRTAZAPINE
     Indication: DEPRESSION
     Route: 065
     Dates: start: 2010, end: 2018
  2. INVEGA [Suspect]
     Active Substance: PALIPERIDONE
     Indication: DEPRESSION
     Route: 048
     Dates: start: 20170228, end: 20181203
  3. AREMIS (SERTRALINE HYDROCHLORIDE) [Suspect]
     Active Substance: SERTRALINE HYDROCHLORIDE
     Indication: DEPRESSION
     Route: 065
     Dates: start: 2013, end: 2018

REACTIONS (4)
  - Parkinsonism [Recovered/Resolved]
  - Product use in unapproved indication [Unknown]
  - Off label use [Unknown]
  - Diplopia [Recovered/Resolved]

NARRATIVE: CASE EVENT DATE: 20170227
